FAERS Safety Report 5700251-X (Version None)
Quarter: 2008Q2

REPORT INFORMATION
  Report Type: 
  Country: None (occurrence: None)
  Receive Date: 20080410
  Receipt Date: 20080401
  Transmission Date: 20081010
  Serious: Yes (Other)
  Sender: FDA-Public Use
  Company Number: BR-PFIZER INC-2008029776

PATIENT
  Sex: Male
  Weight: 83 kg

DRUGS (6)
  1. VIAGRA [Suspect]
     Indication: ERECTILE DYSFUNCTION
     Route: 048
  2. CAPTOPRIL [Concomitant]
  3. MIDAZOLAM HCL [Concomitant]
  4. ACETYLSALICYLIC ACID SRT [Concomitant]
  5. CLOPIDOGREL [Concomitant]
  6. VALSARTAN [Concomitant]

REACTIONS (2)
  - DRUG INEFFECTIVE [None]
  - INFARCTION [None]
